FAERS Safety Report 4276415-1 (Version None)
Quarter: 2004Q1

REPORT INFORMATION
  Report Type: 
  Country: None (occurrence: None)
  Receive Date: 20040116
  Receipt Date: 20040109
  Transmission Date: 20041129
  Serious: Yes (Other)
  Sender: FDA-Public Use
  Company Number: DE-JNJFOC-20031001693

PATIENT
  Age: 65 Year
  Sex: Male

DRUGS (14)
  1. DURAGESIC [Suspect]
     Indication: PAIN
     Dosage: 75 UG/HR, 1 IN 72 HOUR, TRANSDERMAL
     Route: 062
  2. ZOCOR [Concomitant]
  3. ASPIRIN [Concomitant]
  4. AZULFIDINE [Concomitant]
  5. ROCORNAL (TRAPIDIL) [Concomitant]
  6. IMUREK (AZATHIOPRINE) [Concomitant]
  7. PREDNI H (PRENISOLONE) [Concomitant]
  8. RAMIPRIL [Concomitant]
  9. DICLOFENAC SODIUM [Concomitant]
  10. PLAVIX [Concomitant]
  11. DYTIDE (DYTIDE) TABLETS [Concomitant]
  12. ACTONEL [Concomitant]
  13. OMEPRAZOLE [Concomitant]
  14. NEBILET (NEBIVOLOL) TABLETS [Concomitant]

REACTIONS (1)
  - ANAEMIA [None]
